FAERS Safety Report 25581020 (Version 1)
Quarter: 2025Q3

REPORT INFORMATION
  Report Type: Spontaneous
  Country: US (occurrence: US)
  Receive Date: 20250718
  Receipt Date: 20250718
  Transmission Date: 20251020
  Serious: No
  Sender: NOVO NORDISK
  Company Number: US-NOVOPROD-1353633

PATIENT
  Sex: Female

DRUGS (2)
  1. WEGOVY [Suspect]
     Active Substance: SEMAGLUTIDE
     Indication: Blood glucose
  2. WEGOVY [Suspect]
     Active Substance: SEMAGLUTIDE
     Indication: Weight control
     Route: 058
     Dates: start: 20240301

REACTIONS (3)
  - Adverse drug reaction [Not Recovered/Not Resolved]
  - Injection site discharge [Not Recovered/Not Resolved]
  - Wrong technique in product usage process [Not Recovered/Not Resolved]

NARRATIVE: CASE EVENT DATE: 20241011
